FAERS Safety Report 18618240 (Version 1)
Quarter: 2020Q4

REPORT INFORMATION
  Report Type: Spontaneous
  Country: US (occurrence: US)
  Receive Date: 20201215
  Receipt Date: 20201215
  Transmission Date: 20210114
  Serious: No
  Sender: FDA-Public Use
  Company Number: None

PATIENT
  Age: 69 Year
  Sex: Female
  Weight: 33.35 kg

DRUGS (13)
  1. ATORVASTATIN CALCIUM. [Concomitant]
     Active Substance: ATORVASTATIN CALCIUM
  2. AMLODIPINE BESYLATE. [Concomitant]
     Active Substance: AMLODIPINE BESYLATE
  3. IBRANCE [Suspect]
     Active Substance: PALBOCICLIB
     Indication: BREAST CANCER
     Dates: start: 20201105
  4. LETROZOLE. [Concomitant]
     Active Substance: LETROZOLE
  5. LISINOPRIL. [Concomitant]
     Active Substance: LISINOPRIL
  6. EXEMESTANE. [Concomitant]
     Active Substance: EXEMESTANE
  7. FLUTICASONE PROPIONATE. [Concomitant]
     Active Substance: FLUTICASONE PROPIONATE
  8. METFORMIN HCL [Concomitant]
     Active Substance: METFORMIN HYDROCHLORIDE
  9. ONDANSETRON HCL [Concomitant]
     Active Substance: ONDANSETRON HYDROCHLORIDE
  10. ALLOPURINOL. [Concomitant]
     Active Substance: ALLOPURINOL
  11. BISOPROLOL-HYDROCHLOROTHIAZIDE [Concomitant]
     Active Substance: BISOPROLOL FUMARATE\HYDROCHLOROTHIAZIDE
  12. NYSTATIN. [Concomitant]
     Active Substance: NYSTATIN
  13. KLOR-CON M10 [Concomitant]
     Active Substance: POTASSIUM CHLORIDE

REACTIONS (1)
  - Weight decreased [None]

NARRATIVE: CASE EVENT DATE: 20201204
